FAERS Safety Report 4854433-X (Version None)
Quarter: 2005Q4

REPORT INFORMATION
  Report Type: 
  Country: None (occurrence: None)
  Receive Date: 20051215
  Receipt Date: 20051017
  Transmission Date: 20060501
  Serious: Yes (Other)
  Sender: FDA-Public Use
  Company Number: PHNR2005AU01509

PATIENT
  Age: 75 Year
  Sex: Female

DRUGS (2)
  1. PAMIDRONATE DISODIUM [Suspect]
     Indication: MULTIPLE MYELOMA
     Dosage: 90 MG MONTHLY
     Route: 042
  2. THALIDOMIDE [Concomitant]

REACTIONS (10)
  - BONE DENSITY DECREASED [None]
  - BONE DISORDER [None]
  - INFECTION [None]
  - LOCAL SWELLING [None]
  - OSTEOMYELITIS [None]
  - OSTEONECROSIS [None]
  - SOFT TISSUE INFECTION [None]
  - TOOTH EXTRACTION [None]
  - TRACHEOSTOMY [None]
  - WOUND DEBRIDEMENT [None]
